FAERS Safety Report 13535302 (Version 1)
Quarter: 2017Q2

REPORT INFORMATION
  Report Type: Spontaneous
  Country: US (occurrence: US)
  Receive Date: 20170511
  Receipt Date: 20170511
  Transmission Date: 20170830
  Serious: No
  Sender: FDA-Public Use
  Company Number: US-FERRINGPH-2016FE02034

PATIENT
  Age: 18 Year
  Sex: Female
  Weight: 80.73 kg

DRUGS (2)
  1. PITOCIN [Concomitant]
     Active Substance: OXYTOCIN
     Indication: LABOUR INDUCTION
     Dosage: UNK
     Route: 042
     Dates: start: 20160414, end: 20160414
  2. CERVIDIL [Suspect]
     Active Substance: DINOPROSTONE
     Indication: INDUCTION OF CERVIX RIPENING
     Dosage: 10 MG, ONCE/SINGLE
     Route: 067
     Dates: start: 20160413, end: 20160505

REACTIONS (5)
  - Arrested labour [Recovered/Resolved]
  - Vulvovaginal pain [Recovered/Resolved]
  - Drug administration error [Recovered/Resolved]
  - Urine odour abnormal [Recovered/Resolved]
  - Vaginal odour [Recovered/Resolved]

NARRATIVE: CASE EVENT DATE: 201604
